FAERS Safety Report 4867480-9 (Version None)
Quarter: 2005Q4

REPORT INFORMATION
  Report Type: 
  Country: None (occurrence: None)
  Receive Date: 20051227
  Receipt Date: 20051227
  Transmission Date: 20060501
  Serious: Yes (Hospitalization)
  Sender: FDA-Public Use
  Company Number: None

PATIENT
  Sex: Male
  Weight: 49.5 kg

DRUGS (3)
  1. LAMOTRIGINE [Suspect]
     Indication: ABNORMAL BEHAVIOUR
     Dosage: BID  PO
     Route: 048
     Dates: start: 20051214, end: 20051220
  2. SEROQUEL [Concomitant]
  3. LAMICTAL [Concomitant]

REACTIONS (1)
  - STEVENS-JOHNSON SYNDROME [None]
